FAERS Safety Report 5300877-1 (Version None)
Quarter: 2007Q2

REPORT INFORMATION
  Report Type: 
  Country: None (occurrence: None)
  Receive Date: 20070411
  Receipt Date: 20070329
  Transmission Date: 20071010
  Serious: Yes (Other)
  Sender: FDA-Public Use
  Company Number: 2007313703

PATIENT
  Age: 73 Year
  Sex: Female
  Weight: 88.5 kg

DRUGS (1)
  1. BENADRYL [Suspect]
     Indication: RASH PRURITIC
     Dosage: 1 CAPSULE ONCE, ORAL
     Route: 048
     Dates: start: 20070329, end: 20070329

REACTIONS (1)
  - THROAT TIGHTNESS [None]
